FAERS Safety Report 5959408-5 (Version None)
Quarter: 2008Q4

REPORT INFORMATION
  Report Type: 
  Country: None (occurrence: None)
  Receive Date: 20081120
  Receipt Date: 20081001
  Transmission Date: 20090506
  Serious: No
  Sender: FDA-Public Use
  Company Number: A0745207A

PATIENT
  Age: 68 Year
  Sex: Female

DRUGS (3)
  1. VERAMYST [Suspect]
     Route: 045
     Dates: start: 20071030, end: 20080801
  2. ASTELIN [Concomitant]
  3. SINGULAIR [Concomitant]

REACTIONS (1)
  - NASAL ULCER [None]
